FAERS Safety Report 18037716 (Version 2)
Quarter: 2020Q3

REPORT INFORMATION
  Report Type: Spontaneous
  Country: CN (occurrence: CN)
  Receive Date: 20200717
  Receipt Date: 20200803
  Transmission Date: 20201103
  Serious: Yes (Hospitalization, Other)
  Sender: FDA-Public Use
  Company Number: CN-ASTRAZENECA-2020SE89205

PATIENT
  Age: 74 Year
  Sex: Male
  Weight: 63 kg

DRUGS (4)
  1. IRESSA [Suspect]
     Active Substance: GEFITINIB
     Indication: NON-SMALL CELL LUNG CANCER
     Dosage: UNKNOWN
     Route: 048
  2. TAGRISSO [Suspect]
     Active Substance: OSIMERTINIB
     Indication: NON-SMALL CELL LUNG CANCER
     Route: 048
  3. DACOMITINIB [Concomitant]
     Active Substance: DACOMITINIB
  4. ICOTINIB [Concomitant]
     Active Substance: ICOTINIB

REACTIONS (10)
  - Metastases to central nervous system [Unknown]
  - Hemiparesis [Unknown]
  - Cerebral artery embolism [Unknown]
  - Hepatic function abnormal [Recovered/Resolved]
  - Drug ineffective [Unknown]
  - Malignant neoplasm progression [Unknown]
  - Drug resistance [Unknown]
  - Somnolence [Unknown]
  - Metastatic neoplasm [Unknown]
  - Intracranial tumour haemorrhage [Recovering/Resolving]
